FAERS Safety Report 6655303-7 (Version None)
Quarter: 2010Q1

REPORT INFORMATION
  Report Type: 
  Country: None (occurrence: None)
  Receive Date: 20100324
  Receipt Date: 20100312
  Transmission Date: 20100710
  Serious: Yes (Life-Threatening, Hospitalization)
  Sender: FDA-Public Use
  Company Number: GB-1166970

PATIENT
  Age: 5 Year
  Sex: Female

DRUGS (4)
  1. IOPIDINE [Suspect]
     Indication: VASOCONSTRICTION
     Dosage: GTT OPHTHALMIC
     Route: 047
     Dates: start: 20080801, end: 20080801
  2. PROPOFOL [Concomitant]
  3. REMIFENTANIL (REMIFENTANIL) [Concomitant]
  4. GLYCOPYRROLATE (GLYCOPYRRONIUM) [Concomitant]

REACTIONS (5)
  - DRUG INTERACTION [None]
  - HYPERTENSION [None]
  - OXYGEN SATURATION DECREASED [None]
  - PULMONARY OEDEMA [None]
  - SOMNOLENCE [None]
